FAERS Safety Report 13237418 (Version 2)
Quarter: 2017Q1

REPORT INFORMATION
  Report Type: Spontaneous
  Country: CN (occurrence: CN)
  Receive Date: 20170215
  Receipt Date: 20170227
  Transmission Date: 20170428
  Serious: Yes (Other)
  Sender: FDA-Public Use
  Company Number: CN-GILEAD-2017-0256117

PATIENT
  Sex: Male

DRUGS (3)
  1. TELBIVUDINE [Suspect]
     Active Substance: TELBIVUDINE
     Indication: HEPATITIS B
     Dosage: 1 TABLET, UNK
     Route: 048
     Dates: end: 201610
  2. HEPSERA [Suspect]
     Active Substance: ADEFOVIR DIPIVOXIL
     Indication: HEPATITIS B
     Dosage: 1 TABLET, QD
     Route: 048
     Dates: start: 2015, end: 201610
  3. VIREAD [Suspect]
     Active Substance: TENOFOVIR DISOPROXIL FUMARATE
     Indication: HEPATITIS B
     Dosage: 1 TABLET, QD,
     Route: 048
     Dates: start: 201610

REACTIONS (6)
  - Aspartate aminotransferase increased [Not Recovered/Not Resolved]
  - Glomerular filtration rate decreased [Not Recovered/Not Resolved]
  - Drug resistance [Unknown]
  - Alanine aminotransferase increased [Not Recovered/Not Resolved]
  - Hepatitis B e antigen [Unknown]
  - Renal injury [Not Recovered/Not Resolved]

NARRATIVE: CASE EVENT DATE: 201610
